FAERS Safety Report 5771768-7 (Version None)
Quarter: 2008Q2

REPORT INFORMATION
  Report Type: 
  Country: None (occurrence: None)
  Receive Date: 20080613
  Receipt Date: 20080603
  Transmission Date: 20081010
  Serious: Yes (Hospitalization, Other)
  Sender: FDA-Public Use
  Company Number: US-ROCHE-535385

PATIENT
  Sex: Male

DRUGS (4)
  1. PEG-INTERFERON A-2A (RO 25-8310) [Suspect]
     Route: 058
     Dates: start: 20070716, end: 20070917
  2. RIBAVIRIN [Suspect]
     Route: 048
     Dates: start: 20070716, end: 20070917
  3. MULTI-VITAMIN [Concomitant]
  4. COREG [Concomitant]

REACTIONS (3)
  - ANAEMIA [None]
  - BLOOD IRON INCREASED [None]
  - LOSS OF CONSCIOUSNESS [None]
